FAERS Safety Report 6160999-2 (Version None)
Quarter: 2009Q2

REPORT INFORMATION
  Report Type: 
  Country: None (occurrence: None)
  Receive Date: 20090420
  Receipt Date: 20090408
  Transmission Date: 20091009
  Serious: Yes (Hospitalization, Other)
  Sender: FDA-Public Use
  Company Number: US-PFIZER INC-2007073117

PATIENT
  Age: 51 Year
  Sex: Female
  Weight: 54.4 kg

DRUGS (4)
  1. CHANTIX [Suspect]
     Indication: EX-TOBACCO USER
     Route: 048
     Dates: start: 20070730, end: 20070814
  2. ZYRTEC [Suspect]
     Indication: HYPERSENSITIVITY
     Route: 048
     Dates: start: 20070820, end: 20070801
  3. BENADRYL [Suspect]
     Indication: HYPERSENSITIVITY
     Route: 042
     Dates: start: 20070801
  4. HYDROCODONE BITARTRATE [Concomitant]
     Route: 048

REACTIONS (9)
  - DIZZINESS [None]
  - HYPERSENSITIVITY [None]
  - NAUSEA [None]
  - OROPHARYNGEAL PAIN [None]
  - POOR VENOUS ACCESS [None]
  - SKIN EXFOLIATION [None]
  - SOMNOLENCE [None]
  - TREMOR [None]
  - WHITE BLOOD CELL COUNT DECREASED [None]
